FAERS Safety Report 17807445 (Version 1)
Quarter: 2020Q2

REPORT INFORMATION
  Report Type: Spontaneous
  Country: US (occurrence: US)
  Receive Date: 20200520
  Receipt Date: 20200520
  Transmission Date: 20200714
  Serious: Yes (Hospitalization)
  Sender: FDA-Public Use
  Company Number: None

PATIENT
  Age: 79 Year
  Sex: Male
  Weight: 90 kg

DRUGS (1)
  1. INFLIXIMAB (INFLIXIMAB 100MG/VIL (PF) INJ) [Suspect]
     Active Substance: INFLIXIMAB
     Dosage: ?          OTHER STRENGTH:100MG/VIL;?
     Route: 042
     Dates: start: 20190613, end: 20190613

REACTIONS (11)
  - Diarrhoea [None]
  - Confusional state [None]
  - Cough [None]
  - Pruritus [None]
  - Seizure [None]
  - Hypotension [None]
  - Anaphylactic reaction [None]
  - Respiratory depression [None]
  - Wheezing [None]
  - Rash [None]
  - Urticaria [None]

NARRATIVE: CASE EVENT DATE: 20190613
